FAERS Safety Report 4746527-4 (Version None)
Quarter: 2005Q3

REPORT INFORMATION
  Report Type: 
  Country: None (occurrence: None)
  Receive Date: 20050815
  Receipt Date: 20050809
  Transmission Date: 20060218
  Serious: Yes (Life-Threatening, Hospitalization)
  Sender: FDA-Public Use
  Company Number: 2005AD000073

PATIENT
  Age: 74 Year
  Sex: Female

DRUGS (5)
  1. CEPHALEXIN [Suspect]
     Indication: INFLAMMATION
     Dosage: 500 MG; PO
     Route: 048
     Dates: start: 20050604, end: 20050604
  2. LOXONON (LOXOPROFEN SODIUM) [Suspect]
     Indication: INFLAMMATION
     Dosage: 60 MG; PO
     Route: 048
     Dates: start: 20050604, end: 20050604
  3. MEVALOTIN [Concomitant]
  4. MYSLEE [Concomitant]
  5. OPALMON [Concomitant]

REACTIONS (3)
  - ANAPHYLACTIC SHOCK [None]
  - FLUSHING [None]
  - TACHYPNOEA [None]
